FAERS Safety Report 11728652 (Version 1)
Quarter: 2015Q4

REPORT INFORMATION
  Report Type: Spontaneous
  Country: US (occurrence: US)
  Receive Date: 20151110
  Receipt Date: 20151110
  Transmission Date: 20160304
  Serious: No
  Sender: FDA-Public Use
  Company Number: US-ELI_LILLY_AND_COMPANY-US201111009061

PATIENT
  Age: 64 Year
  Sex: Female

DRUGS (4)
  1. FORTEO [Suspect]
     Active Substance: TERIPARATIDE
     Indication: OSTEOPOROSIS
     Dosage: 20 UG, QD
     Route: 058
     Dates: start: 20111121
  2. FORTEO [Suspect]
     Active Substance: TERIPARATIDE
     Dosage: 20 UG, QD
     Route: 058
     Dates: end: 20111127
  3. FORTEO [Suspect]
     Active Substance: TERIPARATIDE
     Dosage: 20 UG, QD
     Route: 058
  4. PLAQUENIL [Concomitant]
     Active Substance: HYDROXYCHLOROQUINE SULFATE
     Indication: INFLAMMATION

REACTIONS (19)
  - Malaise [Unknown]
  - Asthenia [Unknown]
  - Nasopharyngitis [Unknown]
  - Throat irritation [Unknown]
  - Back pain [Unknown]
  - Lethargy [Unknown]
  - Eye disorder [Unknown]
  - Anger [Unknown]
  - Fibromyalgia [Recovered/Resolved]
  - Bladder disorder [Unknown]
  - Intentional product misuse [Unknown]
  - Influenza like illness [Unknown]
  - Body temperature increased [Unknown]
  - Chills [Unknown]
  - Pain [Unknown]
  - Somnolence [Unknown]
  - Feeling hot [Unknown]
  - Eye pain [Unknown]
  - Fatigue [Unknown]

NARRATIVE: CASE EVENT DATE: 20111128
